FAERS Safety Report 4553084-4 (Version None)
Quarter: 2005Q1

REPORT INFORMATION
  Report Type: 
  Country: None (occurrence: None)
  Receive Date: 20050114
  Receipt Date: 20050104
  Transmission Date: 20050727
  Serious: Yes (Other)
  Sender: FDA-Public Use
  Company Number: FR-JNJFOC-20041106083

PATIENT
  Sex: Male
  Weight: 1.68 kg

DRUGS (3)
  1. EPITOMAX [Suspect]
     Indication: DRUG USE FOR UNKNOWN INDICATION
     Route: 015
     Dates: start: 20030701, end: 20040302
  2. PHENOBARBITAL TAB [Concomitant]
     Route: 015
  3. KEPPRA [Concomitant]
     Route: 015

REACTIONS (6)
  - CAESAREAN SECTION [None]
  - DEVELOPMENTAL DELAY [None]
  - DRUG EXPOSURE DURING PREGNANCY [None]
  - FOETAL GROWTH RETARDATION [None]
  - HYPOTONIA [None]
  - PREMATURE LABOUR [None]
